FAERS Safety Report 12633286 (Version 2)
Quarter: 2016Q3

REPORT INFORMATION
  Report Type: Spontaneous
  Country: US (occurrence: US)
  Receive Date: 20160808
  Receipt Date: 20160808
  Transmission Date: 20161109
  Serious: No
  Sender: FDA-Public Use
  Company Number: US-BEH-2016060349

PATIENT
  Sex: Female
  Weight: 52 kg

DRUGS (26)
  1. ZANTAC [Concomitant]
     Active Substance: RANITIDINE HYDROCHLORIDE
  2. CITALOPRAM [Concomitant]
     Active Substance: CITALOPRAM HYDROBROMIDE
  3. CALTRATE [Concomitant]
     Active Substance: CALCIUM CARBONATE
  4. BUTALBITAL-ACETAMINOPHEN-CAFFEINE [Concomitant]
  5. VOLTAREN [Concomitant]
     Active Substance: DICLOFENAC SODIUM
  6. LIDOCAINE. [Concomitant]
     Active Substance: LIDOCAINE
  7. HIZENTRA [Suspect]
     Active Substance: HUMAN IMMUNOGLOBULIN G
     Indication: HYPOGAMMAGLOBULINAEMIA
     Route: 058
  8. ADVIL [Concomitant]
     Active Substance: IBUPROFEN
  9. CELEXA [Concomitant]
     Active Substance: CITALOPRAM HYDROBROMIDE
  10. VITAMIN D [Concomitant]
     Active Substance: CHOLECALCIFEROL
  11. OCUVITE [Concomitant]
     Active Substance: VITAMINS
  12. MUPIROCIN. [Concomitant]
     Active Substance: MUPIROCIN
  13. OMNICEF [Concomitant]
     Active Substance: CEFDINIR
  14. AMBIEN [Concomitant]
     Active Substance: ZOLPIDEM TARTRATE
  15. MUCINEX [Concomitant]
     Active Substance: GUAIFENESIN
  16. DIPHENHYDRAMINE. [Concomitant]
     Active Substance: DIPHENHYDRAMINE
  17. EPIPEN [Concomitant]
     Active Substance: EPINEPHRINE
  18. HIZENTRA [Suspect]
     Active Substance: HUMAN IMMUNOGLOBULIN G
     Indication: HYPOGAMMAGLOBULINAEMIA
     Route: 058
  19. PRILOSEC [Concomitant]
     Active Substance: OMEPRAZOLE MAGNESIUM
  20. OMEGA-3 ACIDS [Concomitant]
     Active Substance: OMEGA-3 FATTY ACIDS
  21. FLUTICASONE [Concomitant]
     Active Substance: FLUTICASONE\FLUTICASONE PROPIONATE
  22. BENZONATATE. [Concomitant]
     Active Substance: BENZONATATE
  23. ESTRADIOL. [Concomitant]
     Active Substance: ESTRADIOL
  24. SPIRIVA [Concomitant]
     Active Substance: TIOTROPIUM BROMIDE MONOHYDRATE
  25. PROAIR HFA [Concomitant]
     Active Substance: ALBUTEROL SULFATE
  26. ACETAMINOPHEN. [Concomitant]
     Active Substance: ACETAMINOPHEN

REACTIONS (1)
  - Influenza [Unknown]
